FAERS Safety Report 22983323 (Version 3)
Quarter: 2025Q4

REPORT INFORMATION
  Report Type: Report from Study
  Country: US (occurrence: US)
  Receive Date: 20230926
  Receipt Date: 20251022
  Transmission Date: 20260117
  Serious: No
  Sender: AMGEN
  Company Number: US-AMGEN-USASP2023169359

PATIENT
  Age: 71 Year
  Sex: Female

DRUGS (1)
  1. TAVNEOS [Suspect]
     Active Substance: AVACOPAN
     Indication: Microscopic polyangiitis
     Dosage: UNK UNK, BID
     Route: 065
     Dates: end: 20230830

REACTIONS (1)
  - Diarrhoea [Unknown]
